FAERS Safety Report 10061276 (Version 1)
Quarter: 2014Q2

REPORT INFORMATION
  Report Type: Spontaneous
  Country: US (occurrence: US)
  Receive Date: 20140407
  Receipt Date: 20140407
  Transmission Date: 20141212
  Serious: No
  Sender: FDA-Public Use
  Company Number: US-SHIRE-US201400670

PATIENT
  Sex: 0

DRUGS (1)
  1. VYVANSE [Suspect]
     Indication: COGNITIVE DISORDER
     Dosage: UNK, UNKNOWN
     Route: 048

REACTIONS (2)
  - Off label use [Not Recovered/Not Resolved]
  - No adverse event [Not Recovered/Not Resolved]
